FAERS Safety Report 11848427 (Version 2)
Quarter: 2016Q1

REPORT INFORMATION
  Report Type: Report from Study
  Country: DE (occurrence: DE)
  Receive Date: 20151218
  Receipt Date: 20160317
  Transmission Date: 20160526
  Serious: Yes (Other)
  Sender: FDA-Public Use
  Company Number: DE-ROCHE-1677683

PATIENT
  Age: 54 Year
  Sex: Male

DRUGS (10)
  1. ASPIRIN. [Concomitant]
     Active Substance: ASPIRIN
     Route: 065
  2. SIMVASTATIN. [Concomitant]
     Active Substance: SIMVASTATIN
  3. PREDNISOLON [Concomitant]
     Active Substance: PREDNISOLONE
     Route: 065
  4. ROACTEMRA [Suspect]
     Active Substance: TOCILIZUMAB
     Route: 058
     Dates: start: 201505, end: 201510
  5. FALITHROM [Concomitant]
     Active Substance: PHENPROCOUMON
     Route: 065
  6. RAMIPRIL. [Concomitant]
     Active Substance: RAMIPRIL
     Route: 065
  7. ROACTEMRA [Suspect]
     Active Substance: TOCILIZUMAB
     Indication: RHEUMATOID ARTHRITIS
     Route: 058
     Dates: start: 20141201, end: 201503
  8. ROACTEMRA [Suspect]
     Active Substance: TOCILIZUMAB
     Route: 058
     Dates: end: 20160215
  9. METOPROLOL. [Concomitant]
     Active Substance: METOPROLOL
     Route: 065
  10. PANTOPRAZOL [Concomitant]
     Active Substance: PANTOPRAZOLE SODIUM

REACTIONS (1)
  - Heart valve replacement [Recovered/Resolved]

NARRATIVE: CASE EVENT DATE: 201503
